FAERS Safety Report 11971830 (Version 2)
Quarter: 2017Q1

REPORT INFORMATION
  Report Type: Spontaneous
  Country: US (occurrence: US)
  Receive Date: 20160128
  Receipt Date: 20170125
  Transmission Date: 20170428
  Serious: Yes (Other)
  Sender: FDA-Public Use
  Company Number: US-JNJFOC-20160116800

PATIENT

DRUGS (3)
  1. SIMEPREVIR [Suspect]
     Active Substance: SIMEPREVIR
     Indication: HEPATITIS C
     Dosage: FOR 12 WEEKS
     Route: 048
  2. TACROLIMUS. [Concomitant]
     Active Substance: TACROLIMUS
     Indication: IMMUNOSUPPRESSION
     Route: 065
  3. SOFOSBUVIR [Suspect]
     Active Substance: SOFOSBUVIR
     Indication: HEPATITIS C
     Dosage: FOR 12 WEEKS
     Route: 048

REACTIONS (14)
  - Hepatitis C [Unknown]
  - Hepatic enzyme increased [Unknown]
  - Off label use [Unknown]
  - Oedema [Unknown]
  - Arthralgia [Unknown]
  - Pyrexia [Unknown]
  - Glomerular filtration rate decreased [Unknown]
  - Rash [Unknown]
  - Clostridium difficile infection [Unknown]
  - Confusional state [Unknown]
  - Fatigue [Unknown]
  - Pneumonia [Unknown]
  - Product use issue [Unknown]
  - Herpes zoster [Unknown]
